FAERS Safety Report 6574997-8 (Version None)
Quarter: 2010Q1

REPORT INFORMATION
  Report Type: 
  Country: None (occurrence: None)
  Receive Date: 20100209
  Receipt Date: 20100126
  Transmission Date: 20100710
  Serious: Yes (Other)
  Sender: FDA-Public Use
  Company Number: FR-AMGEN-US332484

PATIENT
  Sex: Female

DRUGS (3)
  1. ENBREL [Suspect]
     Indication: RHEUMATOID ARTHRITIS
     Route: 058
     Dates: start: 20080430, end: 20100101
  2. CORTANCYL [Concomitant]
     Dosage: UNKNOWN
     Route: 065
  3. NSAIDS [Concomitant]
     Route: 065
     Dates: end: 20100101

REACTIONS (8)
  - BIOPSY BREAST ABNORMAL [None]
  - BREAST CALCIFICATIONS [None]
  - BREAST CANCER [None]
  - BREAST MASS [None]
  - CONDITION AGGRAVATED [None]
  - FATIGUE [None]
  - MEMORY IMPAIRMENT [None]
  - RHEUMATOID ARTHRITIS [None]
